FAERS Safety Report 25673625 (Version 1)
Quarter: 2025Q3

REPORT INFORMATION
  Report Type: Spontaneous
  Country: US (occurrence: US)
  Receive Date: 20250813
  Receipt Date: 20250813
  Transmission Date: 20251021
  Serious: Yes (Other)
  Sender: SPECGX
  Company Number: US-SPECGX-T202501091

PATIENT
  Age: 19 Year
  Sex: Female

DRUGS (7)
  1. OXYCODONE [Suspect]
     Active Substance: OXYCODONE
     Indication: Back pain
     Route: 065
     Dates: start: 20250609, end: 20250612
  2. OXYCODONE [Suspect]
     Active Substance: OXYCODONE
     Indication: Ligament rupture
     Route: 065
  3. OXYCODONE [Suspect]
     Active Substance: OXYCODONE
     Indication: Spinal fracture
  4. HYDROCODONE [Suspect]
     Active Substance: HYDROCODONE
     Indication: Product used for unknown indication
     Route: 065
  5. TYLENOL [Concomitant]
     Active Substance: ACETAMINOPHEN
     Indication: Back pain
     Route: 065
  6. METHOCARBAMOL [Concomitant]
     Active Substance: METHOCARBAMOL
     Indication: Back pain
     Route: 065
  7. ONDANSETRON [Concomitant]
     Active Substance: ONDANSETRON
     Indication: Nausea
     Route: 065

REACTIONS (6)
  - Prescribed overdose [Unknown]
  - Chest discomfort [Recovered/Resolved]
  - Constipation [Unknown]
  - Chest pain [Recovered/Resolved]
  - Abdominal pain upper [Unknown]
  - Product quality issue [Unknown]

NARRATIVE: CASE EVENT DATE: 20250601
